FAERS Safety Report 4292466-5 (Version None)
Quarter: 2004Q1

REPORT INFORMATION
  Report Type: 
  Country: None (occurrence: None)
  Receive Date: 20040211
  Receipt Date: 20040211
  Transmission Date: 20041129
  Serious: Yes (Other)
  Sender: FDA-Public Use
  Company Number: None

PATIENT
  Age: 69 Year
  Sex: Male

DRUGS (9)
  1. ZOSYN [Suspect]
     Indication: PNEUMONIA
     Dosage: 3.375 GM IV Q 6 HR
     Route: 042
     Dates: start: 20040107, end: 20040118
  2. LEVOFLOXACIN [Concomitant]
  3. HEPARIN [Concomitant]
  4. GABAPENYIN [Concomitant]
  5. SCOPOLAMINE [Concomitant]
  6. NPH ILETIN II [Concomitant]
  7. ASPIRIN [Concomitant]
  8. ALBUTEROL [Concomitant]
  9. IPRATROPIUM BROMIDE [Concomitant]

REACTIONS (1)
  - LIVER FUNCTION TEST ABNORMAL [None]
